FAERS Safety Report 9867008 (Version 4)
Quarter: 2014Q2

REPORT INFORMATION
  Report Type: Spontaneous
  Country: TR (occurrence: TR)
  Receive Date: 20140204
  Receipt Date: 20140411
  Transmission Date: 20141212
  Serious: Yes (Life-Threatening, Hospitalization, Disabling, Other)
  Sender: FDA-Public Use
  Company Number: TR-009507513-1401TUR013292

PATIENT
  Age: 48 Year
  Sex: Female
  Weight: 70 kg

DRUGS (2)
  1. TEMODAL [Suspect]
     Indication: GLIOBLASTOMA MULTIFORME
     Dosage: 100MG, TID, IN EVERY 21 DAYS FOR 5 DAYS
     Route: 048
  2. TEMODAL [Suspect]
     Indication: CHEMOTHERAPY

REACTIONS (1)
  - Urticaria [Recovered/Resolved]
